FAERS Safety Report 5056756-0 (Version None)
Quarter: 2006Q2

REPORT INFORMATION
  Report Type: 
  Country: None (occurrence: None)
  Receive Date: 20060616
  Receipt Date: 20060327
  Transmission Date: 20061013
  Serious: No
  Sender: FDA-Public Use
  Company Number: 222003

PATIENT
  Age: 56 Year
  Sex: Male

DRUGS (6)
  1. AVASTIN [Suspect]
     Indication: COLORECTAL CANCER
     Dosage: SEE IMAGE
     Route: 042
     Dates: start: 20060206
  2. ZOFRAN [Suspect]
     Indication: PREMEDICATION
  3. OXALIPLATIN (OXALIPLATIN) [Suspect]
     Indication: COLORECTAL CANCER
  4. FLUOROURACIL [Suspect]
     Indication: COLORECTAL CANCER
  5. DECADRON [Concomitant]
  6. KYTRIL [Concomitant]

REACTIONS (3)
  - AMBLYOPIA [None]
  - BLINDNESS TRANSIENT [None]
  - VISION BLURRED [None]
